FAERS Safety Report 6252967-7 (Version None)
Quarter: 2009Q3

REPORT INFORMATION
  Report Type: 
  Country: None (occurrence: None)
  Receive Date: 20090701
  Receipt Date: 20090624
  Transmission Date: 20100115
  Serious: Yes (Hospitalization)
  Sender: FDA-Public Use
  Company Number: B0580341A

PATIENT
  Age: 51 Year
  Sex: Male

DRUGS (3)
  1. AUGMENTIN '125' [Suspect]
     Indication: INFECTION
     Dosage: 1UNIT THREE TIMES PER DAY
     Route: 048
     Dates: start: 20090202, end: 20090209
  2. SOLUPRED [Suspect]
     Indication: INFECTION
     Dosage: 20MG PER DAY
     Route: 048
     Dates: start: 20090202, end: 20090209
  3. RHINOFLUIMUCIL [Suspect]
     Indication: INFECTION
     Route: 045
     Dates: start: 20090202, end: 20090209

REACTIONS (13)
  - BLISTER [None]
  - BURNING SENSATION [None]
  - CHEILITIS [None]
  - GENITAL ERYTHEMA [None]
  - GLOSSITIS [None]
  - PAIN IN EXTREMITY [None]
  - PURPURA [None]
  - RASH [None]
  - RASH MACULO-PAPULAR [None]
  - SKIN DISORDER [None]
  - SKIN EXFOLIATION [None]
  - SKIN LESION [None]
  - TONGUE DISORDER [None]
